FAERS Safety Report 14420887 (Version 1)
Quarter: 2018Q1

REPORT INFORMATION
  Report Type: Spontaneous
  Country: US (occurrence: US)
  Receive Date: 20180122
  Receipt Date: 20180122
  Transmission Date: 20180509
  Serious: No
  Sender: FDA-Public Use
  Company Number: US-ROCHE-1917856

PATIENT
  Age: 10 Year
  Sex: Male

DRUGS (1)
  1. RITUXAN [Suspect]
     Active Substance: RITUXIMAB
     Indication: SYSTEMIC LUPUS ERYTHEMATOSUS
     Dosage: DAY 1 THEN DAY 15 THEN EVERY 6 MONTHS ;ONGOING: YES
     Route: 042
     Dates: start: 20170316

REACTIONS (2)
  - Off label use [Unknown]
  - Neutropenia [Recovered/Resolved]

NARRATIVE: CASE EVENT DATE: 20170316
